FAERS Safety Report 9248180 (Version 1)
Quarter: 2013Q2

REPORT INFORMATION
  Report Type: Spontaneous
  Country: US (occurrence: US)
  Receive Date: 20130423
  Receipt Date: 20130423
  Transmission Date: 20140414
  Serious: No
  Sender: FDA-Public Use
  Company Number: US-PFIZER INC-2013125389

PATIENT
  Age: 59 Year
  Sex: Male
  Weight: 95.24 kg

DRUGS (5)
  1. GABAPENTIN [Suspect]
     Indication: NEUROPATHY PERIPHERAL
     Dosage: 1200 MG, 3X/DAY
     Dates: start: 2005
  2. NEXIUM [Suspect]
     Indication: ULCER
     Dosage: 80 MG, 1X/DAY
  3. LANTUS [Concomitant]
     Indication: DIABETES MELLITUS
     Dosage: 70 IU, 1X/DAY
  4. LANTUS [Concomitant]
     Dosage: 50 OR 40 IU, 1X/DAY
  5. INSULIN [Concomitant]
     Indication: DIABETES MELLITUS
     Dosage: UNK

REACTIONS (3)
  - Drug ineffective [Unknown]
  - Dyspepsia [Unknown]
  - Expired drug administered [Unknown]
